FAERS Safety Report 8168805-1 (Version None)
Quarter: 2012Q1

REPORT INFORMATION
  Report Type: 
  Country: None (occurrence: None)
  Receive Date: 20120227
  Receipt Date: 20120217
  Transmission Date: 20120608
  Serious: Yes (Hospitalization, Other)
  Sender: FDA-Public Use
  Company Number: CZ-ASTRAZENECA-2012SE09656

PATIENT
  Age: 24073 Day
  Sex: Male

DRUGS (19)
  1. ASPIRIN [Suspect]
     Route: 048
  2. PERINDOPRIL [Concomitant]
     Indication: HYPERTENSION
     Route: 048
  3. ALLOPURINOL [Concomitant]
     Indication: HYPERURICAEMIA
     Route: 048
  4. AMILORIDE HYDROCHLORIDE [Suspect]
     Indication: HYPERTENSION
     Route: 048
  5. PLAVIX [Suspect]
     Indication: CORONARY ARTERY DISEASE
     Route: 048
     Dates: start: 20111123, end: 20111208
  6. HYDROCHLOROTHIAZIDE [Suspect]
     Indication: HYPERTENSION
     Route: 048
  7. PENTOXIFYLLINE [Concomitant]
     Indication: ANGIOPATHY
     Route: 048
  8. ATORVASTATIN [Concomitant]
     Indication: HYPERLIPIDAEMIA
     Route: 048
  9. BISOPROLOL FUMARATE [Concomitant]
     Indication: MYOCARDIAL INFARCTION
     Route: 048
  10. AMOXICILLIN + ACIDUM CLAVULANICUM [Concomitant]
     Indication: PYREXIA
     Dates: start: 20111206
  11. INSULINUM GLARGINUM [Concomitant]
     Indication: DIABETES MELLITUS
     Route: 058
  12. LOSARTAN POTASSIUM [Concomitant]
     Indication: HYPERTENSION
     Route: 048
  13. AMLODIPINE [Concomitant]
     Indication: HYPERTENSION
     Route: 048
  14. TIMOLOL MALEATE [Concomitant]
     Indication: DIABETIC RETINOPATHY
     Route: 047
  15. DORZOLAMIDUM [Concomitant]
     Indication: DIABETIC RETINOPATHY
     Route: 047
  16. INSULINUM GLULISINUM [Concomitant]
     Indication: DIABETES MELLITUS
     Route: 058
  17. FENOFIBRATE [Concomitant]
     Indication: HYPERLIPIDAEMIA
     Route: 048
  18. BIMATOPROSTUM [Concomitant]
     Indication: DIABETIC RETINOPATHY
     Route: 047
  19. ACETAMINOPHEN [Concomitant]
     Indication: PYREXIA
     Route: 048
     Dates: start: 20111206, end: 20111207

REACTIONS (5)
  - BRONCHOPNEUMONIA [None]
  - GASTROINTESTINAL HAEMORRHAGE [None]
  - RENAL FAILURE [None]
  - OSTEOMYELITIS [None]
  - TRAUMATIC HAEMATOMA [None]
